FAERS Safety Report 6647316-6 (Version None)
Quarter: 2010Q1

REPORT INFORMATION
  Report Type: 
  Country: None (occurrence: None)
  Receive Date: 20100323
  Receipt Date: 20100311
  Transmission Date: 20100710
  Serious: Yes (Life-Threatening)
  Sender: FDA-Public Use
  Company Number: B0633486A

PATIENT
  Sex: Male
  Weight: 58 kg

DRUGS (4)
  1. ARIXTRA [Suspect]
     Indication: THROMBOSIS PROPHYLAXIS
     Dosage: 2.5MG PER DAY
     Route: 058
     Dates: start: 20100113
  2. ASPIRIN [Suspect]
     Indication: ANALGESIC THERAPY
     Dosage: 100MG PER DAY
     Route: 048
     Dates: start: 20100105, end: 20100114
  3. CELECOXIB [Suspect]
     Indication: ANALGESIC THERAPY
     Dosage: 100MG THREE TIMES PER DAY
     Route: 054
  4. VONAFEC [Suspect]
     Indication: ANALGESIC THERAPY
     Route: 054
     Dates: start: 20100112, end: 20100125

REACTIONS (13)
  - ANAEMIA [None]
  - CHEST PAIN [None]
  - DEPRESSED LEVEL OF CONSCIOUSNESS [None]
  - DIZZINESS [None]
  - FAECES DISCOLOURED [None]
  - FEELING ABNORMAL [None]
  - GASTRIC ULCER [None]
  - GASTROINTESTINAL HAEMORRHAGE [None]
  - JOINT SWELLING [None]
  - MALAISE [None]
  - MUSCULAR WEAKNESS [None]
  - PALLOR [None]
  - TACHYCARDIA [None]
